FAERS Safety Report 9274621 (Version 1)
Quarter: 2013Q2

REPORT INFORMATION
  Report Type: Spontaneous
  Country: US (occurrence: US)
  Receive Date: 20130507
  Receipt Date: 20130507
  Transmission Date: 20140414
  Serious: Yes (Hospitalization)
  Sender: FDA-Public Use
  Company Number: US-AMGEN-USASP2013029264

PATIENT
  Age: 35 Year
  Sex: Female
  Weight: 56.69 kg

DRUGS (6)
  1. ENBREL [Suspect]
     Indication: PSORIATIC ARTHROPATHY
     Dosage: 50 MG, 2 TIMES/WK
     Route: 058
     Dates: start: 20130406
  2. ENBREL [Suspect]
     Indication: ANKYLOSING SPONDYLITIS
  3. ENBREL [Suspect]
     Indication: PSORIASIS
  4. HYDROXYZINE [Concomitant]
     Dosage: UNK
     Dates: start: 20130426
  5. CLOBETASOL [Concomitant]
     Dosage: UNK
     Dates: start: 20130415
  6. PREDNISONE [Concomitant]
     Dosage: UNK
     Dates: start: 20130324

REACTIONS (7)
  - Pruritus [Recovered/Resolved]
  - Rash pustular [Recovered/Resolved]
  - Malaise [Not Recovered/Not Resolved]
  - Pain [Not Recovered/Not Resolved]
  - Fatigue [Not Recovered/Not Resolved]
  - Hypersensitivity [Not Recovered/Not Resolved]
  - Psoriasis [Recovered/Resolved]
